FAERS Safety Report 14226634 (Version 2)
Quarter: 2017Q4

REPORT INFORMATION
  Report Type: Report from Study
  Country: US (occurrence: US)
  Receive Date: 20171127
  Receipt Date: 20171205
  Transmission Date: 20180321
  Serious: Yes (Other)
  Sender: FDA-Public Use
  Company Number: US-PFIZER INC-2017304088

PATIENT
  Age: 58 Year
  Sex: Female

DRUGS (1)
  1. IBRANCE [Suspect]
     Active Substance: PALBOCICLIB
     Indication: BREAST CANCER
     Dosage: 125 MG, 1X/DAY
     Route: 048
     Dates: start: 20170627, end: 20171121

REACTIONS (14)
  - Condition aggravated [Unknown]
  - Neoplasm progression [Unknown]
  - Tooth abscess [Recovered/Resolved]
  - Dyspnoea [Unknown]
  - Blood urine present [Unknown]
  - Decreased appetite [Unknown]
  - Pleural effusion [Unknown]
  - Lymphoedema [Unknown]
  - Nephrolithiasis [Unknown]
  - White blood cell count decreased [Recovering/Resolving]
  - Fatigue [Not Recovered/Not Resolved]
  - Diarrhoea [Unknown]
  - Pain [Not Recovered/Not Resolved]
  - Disturbance in attention [Not Recovered/Not Resolved]

NARRATIVE: CASE EVENT DATE: 2017
